FAERS Safety Report 7183626-4 (Version None)
Quarter: 2010Q4

REPORT INFORMATION
  Report Type: 
  Country: None (occurrence: None)
  Receive Date: 20101220
  Receipt Date: 20101220
  Transmission Date: 20110411
  Serious: Yes (Hospitalization)
  Sender: FDA-Public Use
  Company Number: None

PATIENT
  Age: 66 Year
  Sex: Female
  Weight: 101.5 kg

DRUGS (16)
  1. ASA [Suspect]
     Dosage: 325MG DAILY PO  CHRONIC
     Route: 048
  2. IBUPROFEN [Suspect]
     Indication: PAIN
     Dosage: PRN PO  CHRONIC
  3. PREMARIN [Concomitant]
  4. ZYRTEC [Concomitant]
  5. STALERO [Concomitant]
  6. LOTREL [Concomitant]
  7. PRIMIDONE [Concomitant]
  8. ZOCOR [Concomitant]
  9. FOLIC ACID [Concomitant]
  10. ARTANE [Concomitant]
  11. REQUIP [Concomitant]
  12. VIT B12 [Concomitant]
  13. LASIX [Concomitant]
  14. DEPAKOTE [Concomitant]
  15. PHENERGAN [Concomitant]
  16. TYLENOL [Concomitant]

REACTIONS (8)
  - COLITIS [None]
  - HAEMATOCHEZIA [None]
  - HAEMATOCRIT DECREASED [None]
  - HAEMOGLOBIN DECREASED [None]
  - INFECTION [None]
  - IRRITABLE BOWEL SYNDROME [None]
  - TACHYCARDIA [None]
  - URINARY TRACT INFECTION [None]
